FAERS Safety Report 7706981-2 (Version None)
Quarter: 2011Q3

REPORT INFORMATION
  Report Type: 
  Country: None (occurrence: None)
  Receive Date: 20110824
  Receipt Date: 20110822
  Transmission Date: 20111222
  Serious: No
  Sender: FDA-Public Use
  Company Number: US-PFIZER INC-2011194112

PATIENT
  Sex: Female
  Weight: 60 kg

DRUGS (2)
  1. PREMARIN [Suspect]
     Indication: VULVOVAGINAL DRYNESS
     Dosage: UNK, 2X/WK
     Dates: end: 20110820
  2. SYNTHROID [Concomitant]
     Indication: HYPOTHYROIDISM
     Dosage: UNK

REACTIONS (3)
  - INCORRECT STORAGE OF DRUG [None]
  - VULVOVAGINAL DISCOMFORT [None]
  - VULVOVAGINAL BURNING SENSATION [None]
